FAERS Safety Report 13494670 (Version 2)
Quarter: 2017Q2

REPORT INFORMATION
  Report Type: Spontaneous
  Country: AU (occurrence: AU)
  Receive Date: 20170428
  Receipt Date: 20170530
  Transmission Date: 20170830
  Serious: Yes (Other)
  Sender: FDA-Public Use
  Company Number: AU-AMGEN-AUSSP2017061994

PATIENT
  Sex: Female

DRUGS (25)
  1. PROLIA [Suspect]
     Active Substance: DENOSUMAB
     Indication: OSTEOPOROTIC FRACTURE
     Dosage: UNK
     Route: 065
     Dates: start: 2016
  2. OMEGA JOINT [Concomitant]
     Indication: OSTEOARTHRITIS
     Dosage: 1670 MG, BID
     Route: 048
  3. SPIRIVA [Concomitant]
     Active Substance: TIOTROPIUM BROMIDE MONOHYDRATE
     Indication: CHRONIC OBSTRUCTIVE PULMONARY DISEASE
     Dosage: 18 MUG, QD
     Route: 065
  4. VENTOLIN [Concomitant]
     Active Substance: ALBUTEROL SULFATE
     Indication: ASTHMA
     Dosage: 100 MUG/DOSE, 1-2 FOUR HOURLY AS NECESSARY
  5. OSTELIN VITAMIN D [Concomitant]
     Active Substance: CHOLECALCIFEROL
     Dosage: 1000 UNIT, BID
     Route: 048
  6. PANTOPRAZOLE EG [Concomitant]
     Active Substance: PANTOPRAZOLE SODIUM
     Indication: GASTROOESOPHAGEAL REFLUX DISEASE
     Dosage: 40 MG, QD
     Route: 048
  7. LIPIDIL [Concomitant]
     Active Substance: FENOFIBRATE
     Dosage: 48 MG, 2QD
     Route: 048
  8. PANADOL [Concomitant]
     Active Substance: ACETAMINOPHEN
     Dosage: 665 MG, 2-3 TIMEAS A DAY
     Route: 048
  9. TEMAZE [Concomitant]
     Active Substance: TEMAZEPAM
     Dosage: 10 MG, 1-2QHS
     Route: 048
  10. CHLORSIG [Concomitant]
     Active Substance: CHLORAMPHENICOL
     Dosage: 1 %, TOP QHS
     Route: 047
  11. GASTRO-STOP [Concomitant]
     Active Substance: LOPERAMIDE
     Dosage: 2 MG, 1-3 AS NECESSARY
     Route: 048
  12. NEURONTIN [Concomitant]
     Active Substance: GABAPENTIN
     Dosage: 300 MG, 2BID
     Route: 048
  13. NICORETTE INALADOR [Concomitant]
     Dosage: 15 MG, 1 DAILY ON BAD DAYS AS NECESSARY
     Route: 065
  14. QUESTRAN LITE [Concomitant]
     Indication: ANAL INCONTINENCE
     Dosage: 4.7 G, 1/4 SACHET QD
     Route: 048
  15. PROLIA [Suspect]
     Active Substance: DENOSUMAB
     Indication: OSTEOPOROSIS
  16. AMLODIPINE [Concomitant]
     Active Substance: AMLODIPINE BESYLATE
     Dosage: 10 MG, QD
     Route: 048
  17. LIPITOR [Concomitant]
     Active Substance: ATORVASTATIN CALCIUM
     Indication: HYPERCHOLESTEROLAEMIA
     Dosage: 20 MG, QD
     Route: 048
  18. RANI 2 [Concomitant]
     Active Substance: RANITIDINE HYDROCHLORIDE
     Dosage: 300 MG, 1 DAILY AS NECESSARY
     Route: 048
  19. DIAZEPAM. [Concomitant]
     Active Substance: DIAZEPAM
     Dosage: 5 MG, 1-2AS NECESSARY
     Route: 048
  20. DUROGESIC [Concomitant]
     Active Substance: FENTANYL
     Dosage: 16.8 MG, 3EVERY THREE DAYS
     Route: 062
  21. ELOCON [Concomitant]
     Active Substance: MOMETASONE FUROATE
     Dosage: 0.1 %, TOP QD
     Route: 061
  22. AMITRIPTYLINE [Concomitant]
     Active Substance: AMITRIPTYLINE
     Indication: RADICULAR PAIN
     Dosage: 50 MG, 3QHS
     Route: 048
  23. NICABATE [Concomitant]
     Active Substance: NICOTINE
     Dosage: 21 MG/24H, QD
     Route: 062
  24. SERETIDE MDI [Concomitant]
     Active Substance: FLUTICASONE PROPIONATE\SALMETEROL XINAFOATE
     Dosage: 250 MUG, 2 BID
     Route: 065
  25. TEARS NATURALE FREE [Concomitant]
     Active Substance: DEXTRAN 70\HYPROMELLOSE 2910 (4000 MPA.S)
     Dosage: 0.3/0.1%, AS NECESSARY
     Route: 047

REACTIONS (2)
  - Sternal fracture [Not Recovered/Not Resolved]
  - Multiple fractures [Not Recovered/Not Resolved]

NARRATIVE: CASE EVENT DATE: 2017
